FAERS Safety Report 4922089-3 (Version None)
Quarter: 2006Q1

REPORT INFORMATION
  Report Type: 
  Country: None (occurrence: None)
  Receive Date: 20060222
  Receipt Date: 20060222
  Transmission Date: 20060701
  Serious: Yes (Hospitalization)
  Sender: FDA-Public Use
  Company Number: None

PATIENT
  Age: 66 Year
  Sex: Male
  Weight: 100.2449 kg

DRUGS (12)
  1. WARFARIN [Suspect]
     Indication: ATRIAL FIBRILLATION
     Dosage: 5 MG PO QHS
     Route: 048
  2. ASPIRIN [Suspect]
     Indication: ATRIAL FIBRILLATION
     Dosage: 81 MG PO DAILY
     Route: 048
  3. TYLENOL (CAPLET) [Concomitant]
  4. PRAVACHOL [Concomitant]
  5. FLOMAX [Concomitant]
  6. RYTHMOL [Concomitant]
  7. COUMADIN [Concomitant]
  8. ASPIRIN [Concomitant]
  9. LISINOPRIL AND HYDROCHLOROTHIAZIDE [Concomitant]
  10. NIFEDIPINE [Concomitant]
  11. LOPRESSOR [Concomitant]
  12. SKELAXIN [Concomitant]

REACTIONS (5)
  - ANAEMIA [None]
  - CONTUSION [None]
  - HAEMATOMA [None]
  - HAEMORRHAGE [None]
  - HYPOTENSION [None]
